FAERS Safety Report 14036034 (Version 1)
Quarter: 2017Q4

REPORT INFORMATION
  Report Type: Spontaneous
  Country: US (occurrence: US)
  Receive Date: 20171003
  Receipt Date: 20171003
  Transmission Date: 20180321
  Serious: No
  Sender: FDA-Public Use
  Company Number: US-ROCHE-1834503

PATIENT
  Age: 11 Year
  Sex: Male

DRUGS (1)
  1. ZELBORAF [Suspect]
     Active Substance: VEMURAFENIB
     Indication: GANGLIOGLIOMA
     Route: 065

REACTIONS (4)
  - Rash [Unknown]
  - Photosensitivity reaction [Unknown]
  - Off label use [Unknown]
  - Alopecia [Unknown]
